FAERS Safety Report 6941287-0 (Version None)
Quarter: 2010Q3

REPORT INFORMATION
  Report Type: 
  Country: None (occurrence: None)
  Receive Date: 20100824
  Receipt Date: 20100824
  Transmission Date: 20110219
  Serious: Yes (Other)
  Sender: FDA-Public Use
  Company Number: None

PATIENT
  Age: 40 Year
  Sex: Female
  Weight: 88.4514 kg

DRUGS (1)
  1. TERBINAFINE HCL [Suspect]
     Indication: TINEA PEDIS
     Dosage: 250MG ONCE A DAY 047
     Dates: start: 20100730, end: 20100804

REACTIONS (5)
  - DRUG HYPERSENSITIVITY [None]
  - PRURITUS [None]
  - RASH GENERALISED [None]
  - SKIN DISORDER [None]
  - SKIN EXFOLIATION [None]
